FAERS Safety Report 11286729 (Version 1)
Quarter: 2015Q3

REPORT INFORMATION
  Report Type: Spontaneous
  Country: US (occurrence: None)
  Receive Date: 20150720
  Receipt Date: 20150720
  Transmission Date: 20151125
  Serious: Yes (Disabling)
  Sender: FDA-Public Use
  Company Number: None

PATIENT
  Age: 58 Year
  Sex: Female
  Weight: 63.5 kg

DRUGS (1)
  1. LEVOFLOXACIN 500 MG [Suspect]
     Active Substance: LEVOFLOXACIN
     Indication: SINUSITIS
     Dosage: 1 PILL ONCE DAILY TAKEN BY MOUTH
     Route: 048

REACTIONS (9)
  - Burning sensation [None]
  - Fatigue [None]
  - Apathy [None]
  - Activities of daily living impaired [None]
  - Feeling abnormal [None]
  - Pain in extremity [None]
  - Arthralgia [None]
  - Skin turgor decreased [None]
  - Paraesthesia [None]

NARRATIVE: CASE EVENT DATE: 20150128
